FAERS Safety Report 9252814 (Version 1)
Quarter: 2013Q1

REPORT INFORMATION
  Report Type: Spontaneous
  Country: US (occurrence: None)
  Receive Date: 20130305
  Receipt Date: 20130305
  Transmission Date: 20140127
  Serious: Yes (Hospitalization)
  Sender: FDA-Public Use
  Company Number: 163-21880-12082156

PATIENT
  Age: 53 Year
  Sex: Female
  Weight: 73.5 kg

DRUGS (10)
  1. REVLIMID (LENALIDOMIDE) [Suspect]
     Indication: PLASMA CELL MYELOMA
     Dates: start: 20120627, end: 20120717
  2. DECADRON [Concomitant]
  3. METOPROLOL (METOPROLOL) [Concomitant]
  4. TYLENOL (PARACETAMOL) [Concomitant]
  5. COUMADIN (WARFARIN SODIUM) [Concomitant]
  6. ZESTORETIC (ZESTORETIC) [Concomitant]
  7. CALCITROL (CALCITROL) [Concomitant]
  8. ACETAMINOPHEN\HYDROCODONE BITARTRATE [Concomitant]
  9. PHENERGAN [Concomitant]
  10. SENNA [Concomitant]

REACTIONS (2)
  - Renal failure acute [None]
  - Plasma cell myeloma [None]
